FAERS Safety Report 18648785 (Version 2)
Quarter: 2021Q1

REPORT INFORMATION
  Report Type: Spontaneous
  Country: IT (occurrence: IT)
  Receive Date: 20201222
  Receipt Date: 20210222
  Transmission Date: 20210419
  Serious: Yes (Other)
  Sender: FDA-Public Use
  Company Number: IT-TEVA-2020-IT-1859354

PATIENT
  Age: 39 Year
  Sex: Female

DRUGS (1)
  1. COPAXONE [Suspect]
     Active Substance: GLATIRAMER ACETATE

REACTIONS (1)
  - Melanocytic naevus [Recovering/Resolving]

NARRATIVE: CASE EVENT DATE: 20100701
